FAERS Safety Report 9380941 (Version 2)
Quarter: 2013Q3

REPORT INFORMATION
  Report Type: Spontaneous
  Country: US (occurrence: US)
  Receive Date: 20130703
  Receipt Date: 20130820
  Transmission Date: 20140515
  Serious: Yes (Death, Hospitalization)
  Sender: FDA-Public Use
  Company Number: US-009507513-1306USA014115

PATIENT
  Sex: Male

DRUGS (4)
  1. SINEMET [Suspect]
     Indication: PARKINSON^S DISEASE
     Dosage: UNK
     Route: 048
  2. CARBIDOPA (+) LEVODOPA [Suspect]
     Route: 048
  3. COMTAN [Concomitant]
  4. MIRAPEX [Concomitant]

REACTIONS (4)
  - Death [Fatal]
  - Resuscitation [Not Recovered/Not Resolved]
  - Nausea [Not Recovered/Not Resolved]
  - Drug ineffective [Unknown]
